FAERS Safety Report 13577231 (Version 1)
Quarter: 2017Q2

REPORT INFORMATION
  Report Type: Spontaneous
  Country: IT (occurrence: IT)
  Receive Date: 20170524
  Receipt Date: 20170524
  Transmission Date: 20170830
  Serious: Yes (Death, Life-Threatening, Other)
  Sender: FDA-Public Use
  Company Number: IT-MEDA-2015060010

PATIENT
  Age: 35 Year
  Sex: Female
  Weight: 48 kg

DRUGS (8)
  1. PREGABALIN. [Suspect]
     Active Substance: PREGABALIN
  2. ZOPICLONE [Suspect]
     Active Substance: ZOPICLONE
  3. TRAMADOL. [Suspect]
     Active Substance: TRAMADOL
  4. LAMOTRIGINE. [Suspect]
     Active Substance: LAMOTRIGINE
     Route: 048
  5. DESVENLAFAXINE. [Suspect]
     Active Substance: DESVENLAFAXINE
  6. MODAFINIL. [Suspect]
     Active Substance: MODAFINIL
  7. ZOLPIDEM [Suspect]
     Active Substance: ZOLPIDEM\ZOLPIDEM TARTRATE
  8. DIPHENHYDRAMINE. [Suspect]
     Active Substance: DIPHENHYDRAMINE

REACTIONS (2)
  - Hypersensitivity vasculitis [Fatal]
  - Toxicity to various agents [Fatal]
